FAERS Safety Report 6264904 (Version 3)
Quarter: 2013Q1

REPORT INFORMATION
  Report Type: Spontaneous
  Country: US (occurrence: US)
  Receive Date: 20061208
  Receipt Date: 20130206
  Transmission Date: 20140127
  Serious: No
  Sender: FDA-Public Use
  Company Number: US-ASTRAZENECA-2005UW10050

PATIENT
  Age: 62 Year
  Sex: Male
  Weight: 102.5 kg

DRUGS (7)
  1. CRESTOR [Suspect]
     Indication: BLOOD CHOLESTEROL INCREASED
     Route: 048
     Dates: start: 2004
  2. NEXIUM [Suspect]
     Indication: GASTROOESOPHAGEAL REFLUX DISEASE
     Route: 048
     Dates: start: 2012
  3. METOPROLOL SUCCINATE [Suspect]
     Indication: HEART RATE ABNORMAL
     Route: 048
     Dates: start: 2008
  4. CARDIZEM LA [Concomitant]
  5. OMEGA 3 [Concomitant]
  6. CALCIUM [Concomitant]
     Indication: BONE LOSS
     Route: 048
     Dates: start: 201208
  7. VITAMINS [Concomitant]
     Indication: BONE LOSS
     Route: 048
     Dates: start: 201208

REACTIONS (7)
  - Chest discomfort [Unknown]
  - Ill-defined disorder [Unknown]
  - Dyspnoea [Unknown]
  - Bone density decreased [Unknown]
  - Gastrooesophageal reflux disease [Unknown]
  - Asthenia [Unknown]
  - Drug dose omission [Unknown]
